FAERS Safety Report 4433920-2 (Version None)
Quarter: 2004Q3

REPORT INFORMATION
  Report Type: 
  Country: None (occurrence: None)
  Receive Date: 20040824
  Receipt Date: 20040824
  Transmission Date: 20050211
  Serious: Yes (Life-Threatening, Other)
  Sender: FDA-Public Use
  Company Number: None

PATIENT
  Age: 44 Year
  Sex: Female
  Weight: 56.6996 kg

DRUGS (2)
  1. ASTELIN [Suspect]
     Indication: HYPERSENSITIVITY
     Dosage: 2 EA NOSTRIL 12 HOURS NASAL
     Route: 045
     Dates: start: 20011120, end: 20040823
  2. ASTELIN [Suspect]
     Indication: SINUS DISORDER
     Dosage: 2 EA NOSTRIL 12 HOURS NASAL
     Route: 045
     Dates: start: 20011120, end: 20040823

REACTIONS (3)
  - BLOOD PRESSURE INCREASED [None]
  - HEART RATE INCREASED [None]
  - MEDICATION ERROR [None]
